FAERS Safety Report 15284234 (Version 1)
Quarter: 2018Q3

REPORT INFORMATION
  Report Type: Report from Study
  Country: BE (occurrence: BE)
  Receive Date: 20180816
  Receipt Date: 20180816
  Transmission Date: 20181010
  Serious: Yes (Hospitalization)
  Sender: FDA-Public Use
  Company Number: BE-PFIZER INC-2018324173

PATIENT
  Age: 74 Year
  Sex: Female
  Weight: 52.9 kg

DRUGS (6)
  1. IRINOTECAN HCL [Suspect]
     Active Substance: IRINOTECAN HYDROCHLORIDE
     Indication: COLORECTAL CANCER METASTATIC
     Dosage: 202 MG, EVERY TWO WEEKS (DATE OF MOST RECENT DOSE OF IRINOTECAN PRIOR TO SAE: 29/JUN/2018)
     Route: 041
     Dates: start: 20180629
  2. ATENOLOL. [Concomitant]
     Active Substance: ATENOLOL
     Dosage: UNK
     Route: 065
  3. PANTOMED /01263204/ [Concomitant]
     Active Substance: PANTOPRAZOLE SODIUM
     Dosage: UNK
     Route: 065
  4. BEVACIZUMAB. [Suspect]
     Active Substance: BEVACIZUMAB
     Indication: COLORECTAL CANCER METASTATIC
     Dosage: 265 MG, EVERY 2 WEEKS (MOST RECENT DOSE OF BEVACIZUMAB PRIOR TO SAE: 29/JUN/2018.)
     Route: 041
     Dates: start: 20180327
  5. FLUOROURACIL. [Suspect]
     Active Substance: FLUOROURACIL
     Indication: COLORECTAL CANCER METASTATIC
     Dosage: 449 MG, EVERY TWO WEEKS
     Route: 041
     Dates: start: 20180327
  6. FLUOROURACIL. [Suspect]
     Active Substance: FLUOROURACIL
     Dosage: 2695 MG, EVERY TWO WEEKS (DATE OF LAST DOSE PRIOR TO SAE: 29/JUN/2018INFUSION OVER 48 H)
     Route: 042
     Dates: start: 20180327

REACTIONS (1)
  - Gastrointestinal inflammation [Unknown]

NARRATIVE: CASE EVENT DATE: 20180710
